FAERS Safety Report 21919228 (Version 4)
Quarter: 2023Q1

REPORT INFORMATION
  Report Type: Spontaneous
  Country: IT (occurrence: IT)
  Receive Date: 20230127
  Receipt Date: 20230330
  Transmission Date: 20230417
  Serious: Yes (Hospitalization, Other)
  Sender: FDA-Public Use
  Company Number: IT-Accord-297412

PATIENT
  Age: 82 Year
  Sex: Female
  Weight: 44.00 kg

DRUGS (14)
  1. GEMCITABINE [Suspect]
     Active Substance: GEMCITABINE
     Indication: Diffuse large B-cell lymphoma stage IV
     Dosage: FREQUENCY: 1Q2W
     Route: 042
     Dates: start: 20221013, end: 20221110
  2. OXALIPLATIN [Suspect]
     Active Substance: OXALIPLATIN
     Indication: Diffuse large B-cell lymphoma stage IV
     Dosage: FREQUENCY 1Q2W
     Route: 042
     Dates: start: 20221013, end: 20221110
  3. EPCORITAMAB [Suspect]
     Active Substance: EPCORITAMAB
     Indication: Diffuse large B-cell lymphoma stage IV
     Dosage: PRIMING DOSE: 0.16 MG; SINGLE
     Route: 058
     Dates: start: 20221013, end: 20221013
  4. ACYCLOVIR [Concomitant]
     Active Substance: ACYCLOVIR
     Dates: start: 20220413
  5. ENALAPRIL [Concomitant]
     Active Substance: ENALAPRIL
     Dates: start: 1996
  6. FILGRASTIM [Concomitant]
     Active Substance: FILGRASTIM
     Dates: start: 20221019
  7. FOLIC ACID [Concomitant]
     Active Substance: FOLIC ACID
     Dates: start: 20220413
  8. OMEPRAZOLE [Concomitant]
     Active Substance: OMEPRAZOLE
     Dates: start: 20220413
  9. TRIMETHOPRIM,SULFAMETHOXAZOLE [Concomitant]
     Dates: start: 20220413
  10. URSODIOL [Concomitant]
     Active Substance: URSODIOL
     Dates: start: 2010
  11. CHLORPHENIRAMINE MALEATE [Concomitant]
     Active Substance: CHLORPHENIRAMINE MALEATE
     Indication: Premedication
     Dosage: 10 MG
     Route: 042
     Dates: start: 20221110, end: 20221110
  12. ACETAMINOPHEN [Concomitant]
     Active Substance: ACETAMINOPHEN
     Indication: Premedication
     Dosage: 1000 MG
     Route: 048
     Dates: start: 20221110, end: 20221110
  13. EPCORITAMAB [Suspect]
     Active Substance: EPCORITAMAB
     Indication: Diffuse large B-cell lymphoma stage IV
     Dosage: INTERMEDIATE DOSE: 0.8 MG; SINGLE
     Route: 058
     Dates: start: 20221020, end: 20221020
  14. EPCORITAMAB [Suspect]
     Active Substance: EPCORITAMAB
     Indication: Diffuse large B-cell lymphoma stage IV
     Dosage: FULL DOSE: 48 MG; WEEKLY
     Route: 058
     Dates: start: 20221027, end: 20221110

REACTIONS (1)
  - Pneumonia viral [Recovered/Resolved with Sequelae]

NARRATIVE: CASE EVENT DATE: 20230103
